FAERS Safety Report 14244998 (Version 3)
Quarter: 2018Q2

REPORT INFORMATION
  Report Type: Spontaneous
  Country: US (occurrence: US)
  Receive Date: 20171201
  Receipt Date: 20180411
  Transmission Date: 20180711
  Serious: Yes (Other)
  Sender: FDA-Public Use
  Company Number: US-BRISTOL-MYERS SQUIBB COMPANY-BMS-2017-106604

PATIENT
  Age: 52 Year
  Sex: Female

DRUGS (5)
  1. GABAPENTIN. [Concomitant]
     Active Substance: GABAPENTIN
     Indication: PRODUCT USED FOR UNKNOWN INDICATION
     Route: 065
  2. TRAZODONE HYDROCHLORIDE. [Concomitant]
     Active Substance: TRAZODONE HYDROCHLORIDE
     Indication: PRODUCT USED FOR UNKNOWN INDICATION
     Route: 065
  3. LORAZEPAM. [Concomitant]
     Active Substance: LORAZEPAM
     Indication: PRODUCT USED FOR UNKNOWN INDICATION
     Route: 065
  4. SPRYCEL [Suspect]
     Active Substance: DASATINIB
     Indication: MYELOID LEUKAEMIA
     Dosage: UNK, QD
     Route: 048
     Dates: start: 20111007
  5. BEVESPI AEROSPHERE [Concomitant]
     Active Substance: FORMOTEROL FUMARATE\GLYCOPYRROLATE
     Indication: PRODUCT USED FOR UNKNOWN INDICATION
     Route: 065

REACTIONS (8)
  - Rash pruritic [Unknown]
  - Weight increased [Unknown]
  - Nausea [Recovering/Resolving]
  - Vomiting [Unknown]
  - Alopecia [Unknown]
  - Pain in extremity [Not Recovered/Not Resolved]
  - Emphysema [Unknown]
  - Muscle strain [Unknown]

NARRATIVE: CASE EVENT DATE: 201110
